FAERS Safety Report 4673023-5 (Version None)
Quarter: 2005Q2

REPORT INFORMATION
  Report Type: 
  Country: None (occurrence: None)
  Receive Date: 20050524
  Receipt Date: 20050510
  Transmission Date: 20051028
  Serious: Yes (Hospitalization, Disabling)
  Sender: FDA-Public Use
  Company Number: 2005072348

PATIENT
  Age: 30 Year
  Sex: Male

DRUGS (3)
  1. ZELDOX (CAPSULES)  (ZIPRASIDONE) [Suspect]
     Indication: ILL-DEFINED DISORDER
     Dosage: 120 MG (60 MG, 2 IN 1 D), ORAL; 80 MG (40 MG, 2 IN 1 D), ORAL
     Route: 048
     Dates: start: 20041201, end: 20050201
  2. DIAZEPAM [Concomitant]
  3. ALL OTHER THERAPEUTIC PRODUCTS [Suspect]
     Indication: ANAESTHESIA

REACTIONS (3)
  - ANAESTHETIC COMPLICATION [None]
  - DRUG INTERACTION [None]
  - TARDIVE DYSKINESIA [None]
